FAERS Safety Report 5276744-9 (Version None)
Quarter: 2007Q1

REPORT INFORMATION
  Report Type: 
  Country: None (occurrence: None)
  Receive Date: 20070327
  Receipt Date: 20070323
  Transmission Date: 20070707
  Serious: Yes (Death, Life-Threatening, Hospitalization, Other)
  Sender: FDA-Public Use
  Company Number: PHHO2004NL04181

PATIENT
  Age: 52 Year
  Sex: Female

DRUGS (2)
  1. STEROIDS NOS [Concomitant]
  2. NEORAL [Suspect]
     Indication: LIVER TRANSPLANT
     Dosage: 1500 MG/DAILY
     Route: 048
     Dates: start: 20040314, end: 20040322

REACTIONS (15)
  - ABDOMINAL STRANGULATED HERNIA [None]
  - ANOXIA [None]
  - ANURIA [None]
  - BRAIN DEATH [None]
  - BRAIN OEDEMA [None]
  - CARDIAC ARREST [None]
  - CEREBRAL DISORDER [None]
  - DISEASE PROGRESSION [None]
  - HYPOXIA [None]
  - ILEUS [None]
  - LIVER TRANSPLANT REJECTION [None]
  - PNEUMONIA ASPIRATION [None]
  - SEPTIC SHOCK [None]
  - UMBILICAL HERNIA [None]
  - VOMITING [None]
